FAERS Safety Report 4431700-5 (Version None)
Quarter: 2004Q3

REPORT INFORMATION
  Report Type: 
  Country: None (occurrence: None)
  Receive Date: 20040825
  Receipt Date: 20040816
  Transmission Date: 20050211
  Serious: Yes (Other)
  Sender: FDA-Public Use
  Company Number: US-JNJFOC-20040500994

PATIENT
  Sex: Female
  Weight: 98.88 kg

DRUGS (5)
  1. REMICADE [Suspect]
     Dosage: INDUCTION INFUSIONS 3MG.KG AT 0, 2, AND 6 WEEKS AND THEN EVERY EIGHT WEEKS THEREAFTER
     Route: 042
  2. MYCOPHENOLATE MOFETIL [Concomitant]
     Indication: UVEITIS
  3. MYCOPHENOLATE MOFETIL [Concomitant]
     Indication: IMMUNOSUPPRESSANT DRUG THERAPY
  4. ZANTAC [Concomitant]
  5. ZYRTEC [Concomitant]

REACTIONS (3)
  - ARTHRITIS [None]
  - DISEASE RECURRENCE [None]
  - PAPILLARY SEROUS ENDOMETRIAL CARCINOMA [None]
